FAERS Safety Report 13781111 (Version 6)
Quarter: 2018Q1

REPORT INFORMATION
  Report Type: Report from Study
  Country: FR (occurrence: FR)
  Receive Date: 20170724
  Receipt Date: 20180131
  Transmission Date: 20180508
  Serious: Yes (Hospitalization)
  Sender: FDA-Public Use
  Company Number: FR-BRISTOL-MYERS SQUIBB COMPANY-BMS-2017-064534

PATIENT
  Age: 52 Year
  Sex: Female
  Weight: 51 kg

DRUGS (2)
  1. NIVOLUMAB [Suspect]
     Active Substance: NIVOLUMAB
     Indication: PRODUCT USED FOR UNKNOWN INDICATION
     Dosage: 147 UNK, UNK
     Route: 065
     Dates: start: 20170721
  2. NIVOLUMAB [Suspect]
     Active Substance: NIVOLUMAB
     Indication: METASTATIC RENAL CELL CARCINOMA
     Dosage: 162 MG, UNK
     Route: 042
     Dates: start: 20170615, end: 20170713

REACTIONS (2)
  - Pain [Recovered/Resolved]
  - General physical health deterioration [Recovered/Resolved with Sequelae]

NARRATIVE: CASE EVENT DATE: 20170622
